FAERS Safety Report 12295310 (Version 1)
Quarter: 2016Q2

REPORT INFORMATION
  Report Type: Spontaneous
  Country: IN (occurrence: IN)
  Receive Date: 20160422
  Receipt Date: 20160422
  Transmission Date: 20160815
  Serious: Yes (Death, Other)
  Sender: FDA-Public Use
  Company Number: IN-BAXTER-2016BAX020582

PATIENT
  Sex: Female

DRUGS (1)
  1. DESFLURANE LIQUID FOR INHALATION [Suspect]
     Active Substance: DESFLURANE
     Indication: ANAESTHESIA PROCEDURE
     Route: 065

REACTIONS (3)
  - Pulmonary haemorrhage [Unknown]
  - Death [Fatal]
  - Post procedural sepsis [Unknown]
